FAERS Safety Report 11984523 (Version 1)
Quarter: 2016Q1

REPORT INFORMATION
  Report Type: Spontaneous
  Country: US (occurrence: US)
  Receive Date: 20160201
  Receipt Date: 20160201
  Transmission Date: 20160526
  Serious: Yes (Other)
  Sender: FDA-Public Use
  Company Number: US-TEVA-625078USA

PATIENT
  Sex: Female

DRUGS (6)
  1. XELJANZ [Suspect]
     Active Substance: TOFACITINIB CITRATE
     Dosage: 10 MILLIGRAM DAILY;
     Route: 065
  2. LYRICA [Concomitant]
     Active Substance: PREGABALIN
     Indication: FIBROMYALGIA
  3. HUMIRA [Suspect]
     Active Substance: ADALIMUMAB
     Route: 058
  4. ALLOPURINOL. [Concomitant]
     Active Substance: ALLOPURINOL
     Indication: GOUT
  5. HYDROXYCHLOROQUINE [Suspect]
     Active Substance: HYDROXYCHLOROQUINE
     Dosage: 400 MILLIGRAM DAILY;
     Route: 048
  6. CYMBALTA [Concomitant]
     Active Substance: DULOXETINE HYDROCHLORIDE
     Indication: FIBROMYALGIA

REACTIONS (11)
  - Osteoporosis [Unknown]
  - Musculoskeletal stiffness [Unknown]
  - Neck pain [Unknown]
  - Wrist fracture [Unknown]
  - Dyspnoea [Unknown]
  - Joint swelling [Unknown]
  - Sinusitis [Recovered/Resolved]
  - Malaise [Unknown]
  - Respiratory tract infection [Recovered/Resolved]
  - Musculoskeletal pain [Unknown]
  - Palpitations [Unknown]
